FAERS Safety Report 6486540-2 (Version None)
Quarter: 2009Q4

REPORT INFORMATION
  Report Type: 
  Country: None (occurrence: None)
  Receive Date: 20091210
  Receipt Date: 20091124
  Transmission Date: 20100525
  Serious: No
  Sender: FDA-Public Use
  Company Number: US-JNJFOC-20091102922

PATIENT
  Sex: Female
  Weight: 61.24 kg

DRUGS (10)
  1. SANDOZ FENTANYL TRANSDERMAL SYSTEM [Suspect]
     Indication: FIBROMYALGIA
     Dosage: NDC#: 0781-7111-55
     Route: 062
     Dates: start: 20091105
  2. UNKNOWN MEDICATION [Concomitant]
     Indication: DRUG USE FOR UNKNOWN INDICATION
  3. DILANTIN [Concomitant]
     Indication: CONVULSION
     Route: 048
  4. ASPIRIN [Concomitant]
     Indication: CARDIAC DISORDER
     Route: 048
     Dates: start: 20090429
  5. PLAVIX [Concomitant]
     Indication: CARDIAC DISORDER
     Route: 048
     Dates: start: 20090429
  6. LIPITOR [Concomitant]
     Indication: BLOOD CHOLESTEROL
     Route: 048
  7. LIBRIUM [Concomitant]
     Indication: NERVOUS SYSTEM DISORDER
     Route: 048
  8. FLEXERIL [Concomitant]
     Indication: MYALGIA
     Route: 048
     Dates: start: 20080101
  9. FISH OIL [Concomitant]
     Indication: NUTRITIONAL SUPPORT
     Route: 048
  10. VITAMINS (NOS) [Concomitant]
     Indication: NUTRITIONAL SUPPORT
     Route: 065

REACTIONS (6)
  - ACNE [None]
  - DRUG EFFECT INCREASED [None]
  - HYPERSOMNIA [None]
  - PRODUCT ADHESION ISSUE [None]
  - TREATMENT NONCOMPLIANCE [None]
  - WRONG TECHNIQUE IN DRUG USAGE PROCESS [None]
